FAERS Safety Report 22073395 (Version 1)
Quarter: 2023Q1

REPORT INFORMATION
  Report Type: Report from Study
  Country: CA (occurrence: CA)
  Receive Date: 20230308
  Receipt Date: 20230308
  Transmission Date: 20230417
  Serious: Yes (Other)
  Sender: FDA-Public Use
  Company Number: CA-GLAXOSMITHKLINE-CA2023AMR004718

PATIENT

DRUGS (3)
  1. MEPOLIZUMAB [Suspect]
     Active Substance: MEPOLIZUMAB
     Indication: Hypereosinophilic syndrome
     Dosage: 300 MG, Z EVERY 4 WEEKS
     Route: 058
     Dates: start: 20220308
  2. MEPOLIZUMAB [Suspect]
     Active Substance: MEPOLIZUMAB
     Indication: Hypereosinophilic syndrome
     Dosage: 300 MG, Z,EVERY 4 WEEKS
     Route: 058
     Dates: start: 20220308
  3. MIRTAZAPINE [Concomitant]
     Active Substance: MIRTAZAPINE
     Indication: Product used for unknown indication
     Dosage: 15 MG

REACTIONS (6)
  - Dementia [Not Recovered/Not Resolved]
  - Somnolence [Recovered/Resolved]
  - Headache [Unknown]
  - Confusional state [Unknown]
  - Rash [Unknown]
  - Erythema [Not Recovered/Not Resolved]
